FAERS Safety Report 5945645-2 (Version None)
Quarter: 2008Q4

REPORT INFORMATION
  Report Type: 
  Country: None (occurrence: None)
  Receive Date: 20081107
  Receipt Date: 20081028
  Transmission Date: 20090506
  Serious: Yes (Death, Hospitalization, Other)
  Sender: FDA-Public Use
  Company Number: TR-PFIZER INC-2008092276

PATIENT
  Age: 60 Year
  Sex: Female

DRUGS (2)
  1. GABAPENTIN [Suspect]
     Route: 048
  2. ACETAMINOPHEN [Concomitant]

REACTIONS (5)
  - COMA [None]
  - DEATH [None]
  - DIZZINESS [None]
  - NAUSEA [None]
  - VOMITING [None]
